FAERS Safety Report 22260998 (Version 2)
Quarter: 2023Q2

REPORT INFORMATION
  Report Type: Spontaneous
  Country: US (occurrence: US)
  Receive Date: 20230427
  Receipt Date: 20230622
  Transmission Date: 20230721
  Serious: No
  Sender: FDA-Public Use
  Company Number: US-MYLANLABS-2023M1041827

PATIENT
  Sex: Female
  Weight: 58 kg

DRUGS (2)
  1. XULANE [Suspect]
     Active Substance: ETHINYL ESTRADIOL\NORELGESTROMIN
     Indication: Contraception
     Dosage: UNK, 150/35 MICROGRAM, QD (ONCE A WEEK)
     Route: 062
     Dates: start: 20230331
  2. XULANE [Suspect]
     Active Substance: ETHINYL ESTRADIOL\NORELGESTROMIN
     Dosage: UNK 150/35 MICROGRAM, QD (ONCE A WEEK)
     Route: 062
     Dates: start: 20230407

REACTIONS (3)
  - Intermenstrual bleeding [Unknown]
  - Wrong technique in product usage process [Unknown]
  - Product adhesion issue [Unknown]
